FAERS Safety Report 12507343 (Version 3)
Quarter: 2016Q3

REPORT INFORMATION
  Report Type: Spontaneous
  Country: IT (occurrence: IT)
  Receive Date: 20160629
  Receipt Date: 20160810
  Transmission Date: 20161109
  Serious: Yes (Other)
  Sender: FDA-Public Use
  Company Number: IT-ROCHE-1784903

PATIENT
  Sex: Female
  Weight: 62 kg

DRUGS (2)
  1. XELODA [Suspect]
     Active Substance: CAPECITABINE
     Indication: COLON CANCER
     Dosage: 500 MG 120 FILM-COATED TABLETS IN A BLISTER PACK,
     Route: 048
     Dates: start: 20140811, end: 20160621
  2. AVASTIN [Suspect]
     Active Substance: BEVACIZUMAB
     Indication: COLON CANCER
     Route: 042
     Dates: start: 20140811, end: 20160621

REACTIONS (2)
  - Abasia [Recovered/Resolved]
  - Neurotoxicity [Recovered/Resolved]
